FAERS Safety Report 22265291 (Version 1)
Quarter: 2023Q2

REPORT INFORMATION
  Report Type: Report from Study
  Country: US (occurrence: US)
  Receive Date: 20230428
  Receipt Date: 20230428
  Transmission Date: 20230721
  Serious: Yes (Other)
  Sender: FDA-Public Use
  Company Number: US-TAKEDA-2023TUS040703

PATIENT
  Sex: Female

DRUGS (27)
  1. MARIBAVIR [Suspect]
     Active Substance: MARIBAVIR
     Indication: Cytomegalovirus infection
     Dosage: 400 MILLIGRAM, BID
     Route: 048
     Dates: start: 20230504, end: 20230518
  2. BUSULFAN [Concomitant]
     Active Substance: BUSULFAN
  3. CYCLOPHOSPHAMIDE [Concomitant]
     Active Substance: CYCLOPHOSPHAMIDE
  4. TACROLIMUS [Concomitant]
     Active Substance: TACROLIMUS
     Dosage: 0.5 MILLIGRAM, QD
  5. TACROLIMUS [Concomitant]
     Active Substance: TACROLIMUS
     Dosage: 50 MILLIGRAM, Q6HR
     Route: 048
     Dates: start: 20221220
  6. METHOTREXATE [Concomitant]
     Active Substance: METHOTREXATE
  7. ABATACEPT [Concomitant]
     Active Substance: ABATACEPT
  8. PREDNISONE [Concomitant]
     Active Substance: PREDNISONE
     Dosage: UNK
     Dates: end: 20230117
  9. BUDESONIDE [Concomitant]
     Active Substance: BUDESONIDE
     Dosage: 3 MILLIGRAM, TID
  10. VALCYTE [Concomitant]
     Active Substance: VALGANCICLOVIR HYDROCHLORIDE
  11. CEFPODOXIME [Concomitant]
     Active Substance: CEFPODOXIME
  12. ATOVAQUONE [Concomitant]
     Active Substance: ATOVAQUONE
     Dosage: 5 MILLILITER, QD
     Route: 048
     Dates: start: 20230208, end: 20230503
  13. CODEINE GUAIFENESIN [Concomitant]
     Active Substance: CODEINE PHOSPHATE\GUAIFENESIN
     Dosage: 5 MILLILITER, TID
     Route: 048
     Dates: start: 20230201
  14. DEFERASIROX [Concomitant]
     Active Substance: DEFERASIROX
     Dosage: 1080 MILLIGRAM, QD
     Route: 048
     Dates: start: 20230201, end: 20230502
  15. DEFERASIROX [Concomitant]
     Active Substance: DEFERASIROX
     Dosage: 720 MILLIGRAM, QD
     Route: 048
     Dates: start: 20230404, end: 20230504
  16. FAMOTIDINE [Concomitant]
     Active Substance: FAMOTIDINE
     Dosage: 20 MILLIGRAM, BID
     Route: 048
     Dates: start: 20230102
  17. FOLIC ACID [Concomitant]
     Active Substance: FOLIC ACID
     Dosage: 1 MILLIGRAM, QD
     Route: 048
     Dates: start: 20230103
  18. FUROSEMIDE [Concomitant]
     Active Substance: FUROSEMIDE
     Dosage: 20 MILLIGRAM, QD
     Route: 048
     Dates: start: 20230109, end: 20230109
  19. EMLA [Concomitant]
     Active Substance: LIDOCAINE\PRILOCAINE
     Dosage: UNK
     Route: 061
     Dates: start: 20220823, end: 20230823
  20. OXYBUTYNIN [Concomitant]
     Active Substance: OXYBUTYNIN
     Dosage: 5 MILLIGRAM, TID
     Route: 048
     Dates: start: 20230111
  21. PANTOPRAZOLE [Concomitant]
     Active Substance: PANTOPRAZOLE
     Dosage: 40 MILLIGRAM, TID
     Route: 048
     Dates: start: 20230104, end: 20230504
  22. PHENAZOPYRIDINE [Concomitant]
     Active Substance: PHENAZOPYRIDINE
     Dosage: 200 MILLIGRAM, QD
     Route: 048
     Dates: start: 20221216
  23. POSACONAZOLE [Concomitant]
     Active Substance: POSACONAZOLE
     Dosage: 300 MILLIGRAM, BID
     Route: 048
  24. POTASSIUM CHLORIDE [Concomitant]
     Active Substance: POTASSIUM CHLORIDE
     Dosage: 20 MILLIEQUIVALENT, QD
     Route: 048
     Dates: start: 20230104
  25. TRIAMCINOLONE [Concomitant]
     Active Substance: TRIAMCINOLONE
     Indication: Rash
     Dosage: UNK UNK, BID
     Route: 061
     Dates: start: 20221205
  26. URSODIOL [Concomitant]
     Active Substance: URSODIOL
     Dosage: 300 MILLIGRAM, BID
     Route: 048
     Dates: start: 20230103
  27. VALGANCICLOVIR HYDROCHLORIDE [Concomitant]
     Active Substance: VALGANCICLOVIR HYDROCHLORIDE
     Dosage: 900 MILLIGRAM, BID
     Route: 048
     Dates: start: 20230404, end: 20230418

REACTIONS (6)
  - Acute myeloid leukaemia [Unknown]
  - Acute graft versus host disease in skin [Unknown]
  - Nasopharyngitis [Unknown]
  - Cough [Unknown]
  - Cytomegalovirus test positive [Unknown]
  - Fatigue [Unknown]
